FAERS Safety Report 5915754-2 (Version None)
Quarter: 2008Q4

REPORT INFORMATION
  Report Type: 
  Country: None (occurrence: None)
  Receive Date: 20081010
  Receipt Date: 20081002
  Transmission Date: 20090506
  Serious: Yes (Death, Life-Threatening, Hospitalization)
  Sender: FDA-Public Use
  Company Number: US-GENENTECH-097357

PATIENT
  Age: 34 Year
  Sex: Female
  Weight: 59.02 kg

DRUGS (9)
  1. RITUXAN [Suspect]
     Indication: NON-HODGKIN'S LYMPHOMA
     Route: 042
     Dates: start: 20000131
  2. DEXAMETHASONE [Suspect]
  3. IFOSFAMIDE [Suspect]
  4. CISPLATIN [Suspect]
  5. ETOPOSIDE [Suspect]
  6. CARMUSTINE [Suspect]
     Dates: start: 19991201
  7. CYTARABINE [Suspect]
  8. CYCLOPHOSPHAMIDE [Suspect]
     Dates: start: 19991201
  9. MESNA [Suspect]

REACTIONS (1)
  - PROGRESSIVE MULTIFOCAL LEUKOENCEPHALOPATHY [None]
